FAERS Safety Report 8299309-3 (Version None)
Quarter: 2012Q2

REPORT INFORMATION
  Report Type: 
  Country: None (occurrence: None)
  Receive Date: 20120419
  Receipt Date: 20120409
  Transmission Date: 20120825
  Serious: Yes (Hospitalization, Congenital Anomaly)
  Sender: FDA-Public Use
  Company Number: US-JNJFOC-20120308533

PATIENT
  Sex: Female

DRUGS (7)
  1. TOPAMAX [Suspect]
     Indication: FOETAL EXPOSURE DURING PREGNANCY
     Route: 064
  2. TOPAMAX [Suspect]
     Route: 064
     Dates: start: 20051021
  3. MIGQUIN [Suspect]
     Indication: FOETAL EXPOSURE DURING PREGNANCY
     Route: 064
     Dates: start: 20051024
  4. TOPAMAX [Suspect]
     Route: 064
  5. TOPAMAX [Suspect]
     Route: 064
  6. MIDRIN [Suspect]
     Indication: FOETAL EXPOSURE DURING PREGNANCY
     Route: 064
  7. NITROFURANTOIN [Suspect]
     Indication: FOETAL EXPOSURE DURING PREGNANCY
     Route: 064
     Dates: start: 20051129

REACTIONS (10)
  - PTERYGIUM COLLI [None]
  - OPTIC NERVE HYPOPLASIA [None]
  - CRYPTOPHTHALMOS [None]
  - TONGUE DISORDER [None]
  - PREMATURE BABY [None]
  - MICROPHTHALMOS [None]
  - CLEFT LIP AND PALATE [None]
  - CONGENITAL TONGUE ANOMALY [None]
  - MATERNAL DRUGS AFFECTING FOETUS [None]
  - HEART DISEASE CONGENITAL [None]
